FAERS Safety Report 12298100 (Version 1)
Quarter: 2016Q2

REPORT INFORMATION
  Report Type: Spontaneous
  Country: US (occurrence: US)
  Receive Date: 20160422
  Receipt Date: 20160422
  Transmission Date: 20160815
  Serious: Yes (Hospitalization, Other)
  Sender: FDA-Public Use
  Company Number: US-SA-2016SA074865

PATIENT
  Age: 60 Year
  Sex: Female

DRUGS (2)
  1. SOLOSTAR [Concomitant]
     Active Substance: DEVICE
     Indication: TYPE 2 DIABETES MELLITUS
     Dates: start: 2012
  2. LANTUS SOLOSTAR [Suspect]
     Active Substance: INSULIN GLARGINE
     Indication: TYPE 2 DIABETES MELLITUS
     Dosage: DOSE:34 UNIT(S)
     Route: 065
     Dates: start: 2012

REACTIONS (8)
  - Visual impairment [Unknown]
  - Retinal oedema [Unknown]
  - Renal disorder [Unknown]
  - Neuropathy peripheral [Unknown]
  - Drug administration error [Unknown]
  - Vision blurred [Unknown]
  - Myocardial infarction [Unknown]
  - Renal impairment [Unknown]

NARRATIVE: CASE EVENT DATE: 20160227
